FAERS Safety Report 18780260 (Version 2)
Quarter: 2021Q1

REPORT INFORMATION
  Report Type: Spontaneous
  Country: FR (occurrence: FR)
  Receive Date: 20210125
  Receipt Date: 20210224
  Transmission Date: 20210419
  Serious: Yes (Death, Hospitalization, Other)
  Sender: FDA-Public Use
  Company Number: FR-SA-2021SA020491

PATIENT
  Age: 55 Year
  Sex: Female
  Weight: 85 kg

DRUGS (4)
  1. PYRAZINAMIDE. [Suspect]
     Active Substance: PYRAZINAMIDE
     Indication: LYMPH NODE TUBERCULOSIS
     Dosage: 2400 MG
     Route: 048
     Dates: start: 20201204, end: 20201215
  2. RIFAMPICIN [Suspect]
     Active Substance: RIFAMPIN
     Indication: LYMPH NODE TUBERCULOSIS
     Dosage: 960 MG
     Route: 048
     Dates: start: 20201206, end: 20201215
  3. ISONIAZID. [Suspect]
     Active Substance: ISONIAZID
     Indication: LYMPH NODE TUBERCULOSIS
     Dosage: 400 MG
     Route: 048
     Dates: start: 20201206, end: 20201215
  4. ETHAMBUTOL [Suspect]
     Active Substance: ETHAMBUTOL HYDROCHLORIDE
     Indication: LYMPH NODE TUBERCULOSIS
     Dosage: 2 TABLETS / DAY OR 1000 MG / DAY
     Route: 048
     Dates: start: 20201204, end: 20201215

REACTIONS (3)
  - Product prescribing error [Fatal]
  - Hepatitis [Fatal]
  - Cholestasis [Fatal]

NARRATIVE: CASE EVENT DATE: 20201204
